FAERS Safety Report 5000928-8 (Version None)
Quarter: 2006Q2

REPORT INFORMATION
  Report Type: 
  Country: None (occurrence: None)
  Receive Date: 20060512
  Receipt Date: 20060502
  Transmission Date: 20061013
  Serious: Yes (Hospitalization, Disabling)
  Sender: FDA-Public Use
  Company Number: US-MERCK-0605USA00805

PATIENT
  Age: 48 Year
  Sex: Male
  Weight: 91 kg

DRUGS (6)
  1. TOPROL-XL [Concomitant]
     Route: 065
  2. PLAVIX [Concomitant]
     Route: 065
  3. VIOXX [Suspect]
     Indication: PAIN
     Route: 048
     Dates: start: 20021101, end: 20030801
  4. LIPITOR [Concomitant]
     Route: 065
  5. ISOSORBIDE [Concomitant]
     Route: 065
  6. STACKER 2 EPHEDRA FREE FORMULA [Concomitant]
     Route: 065

REACTIONS (2)
  - BACK DISORDER [None]
  - MYOCARDIAL INFARCTION [None]
